FAERS Safety Report 18192241 (Version 2)
Quarter: 2020Q4

REPORT INFORMATION
  Report Type: Spontaneous
  Country: US (occurrence: US)
  Receive Date: 20200825
  Receipt Date: 20201125
  Transmission Date: 20210113
  Serious: No
  Sender: FDA-Public Use
  Company Number: US-PFIZER INC-2020326696

PATIENT
  Age: 47 Year
  Sex: Female

DRUGS (1)
  1. LYRICA [Suspect]
     Active Substance: PREGABALIN
     Dosage: 300 MG, 3X/DAY  [2 CAPSULES (300 MG TOTAL) THREE TIMES DAILY]
     Route: 048

REACTIONS (5)
  - Prescribed overdose [Unknown]
  - Insomnia [Unknown]
  - Irritability [Unknown]
  - Fibromyalgia [Unknown]
  - Arthralgia [Unknown]
